FAERS Safety Report 7197227-5 (Version None)
Quarter: 2010Q4

REPORT INFORMATION
  Report Type: 
  Country: None (occurrence: None)
  Receive Date: 20101224
  Receipt Date: 20101222
  Transmission Date: 20110411
  Serious: Yes (Hospitalization)
  Sender: FDA-Public Use
  Company Number: GR-BRISTOL-MYERS SQUIBB COMPANY-15432925

PATIENT
  Age: 60 Year
  Sex: Male

DRUGS (4)
  1. MAXIPIME [Suspect]
     Indication: RESPIRATORY TRACT INFECTION
     Route: 042
     Dates: start: 20101117, end: 20101124
  2. BRIKLIN [Suspect]
     Indication: RESPIRATORY TRACT INFECTION
     Route: 042
     Dates: start: 20101117, end: 20101124
  3. ESMOLOL HCL [Concomitant]
  4. KEPPRA [Concomitant]

REACTIONS (1)
  - THROMBOCYTOPENIA [None]
